FAERS Safety Report 6407000-0 (Version None)
Quarter: 2009Q4

REPORT INFORMATION
  Report Type: 
  Country: None (occurrence: None)
  Receive Date: 20091020
  Receipt Date: 20091008
  Transmission Date: 20100525
  Serious: Yes (Hospitalization, Other)
  Sender: FDA-Public Use
  Company Number: PHEH2009US09416

PATIENT
  Sex: Male

DRUGS (1)
  1. EXJADE [Suspect]
     Indication: POLYCYTHAEMIA VERA
     Dosage: 2000 MG, DAILY
     Route: 048
     Dates: start: 20090717

REACTIONS (2)
  - CONFUSIONAL STATE [None]
  - PNEUMONIA BACTERIAL [None]
